FAERS Safety Report 14554155 (Version 1)
Quarter: 2018Q1

REPORT INFORMATION
  Report Type: Spontaneous
  Country: GR (occurrence: GR)
  Receive Date: 20180220
  Receipt Date: 20180220
  Transmission Date: 20180509
  Serious: Yes (Hospitalization)
  Sender: FDA-Public Use
  Company Number: GR-EPIC PHARMA LLC-2018EPC00078

PATIENT
  Age: 72 Year
  Sex: Male

DRUGS (1)
  1. AMLODIPINE [Suspect]
     Active Substance: AMLODIPINE BESYLATE
     Indication: HYPERTENSION
     Route: 065

REACTIONS (4)
  - Shock [Recovered/Resolved]
  - Overdose [Recovered/Resolved]
  - Poisoning [Recovered/Resolved]
  - Aspiration [Recovered/Resolved]
